FAERS Safety Report 13685028 (Version 3)
Quarter: 2017Q3

REPORT INFORMATION
  Report Type: Report from Study
  Country: US (occurrence: US)
  Receive Date: 20170623
  Receipt Date: 20170707
  Transmission Date: 20171127
  Serious: Yes (Hospitalization, Other)
  Sender: FDA-Public Use
  Company Number: US-GILEAD-2017-0270844

PATIENT
  Age: 51 Year
  Sex: Female

DRUGS (4)
  1. WARFARIN [Concomitant]
     Active Substance: WARFARIN
  2. REMODULIN [Concomitant]
     Active Substance: TREPROSTINIL
  3. SILDENAFIL CITRATE. [Concomitant]
     Active Substance: SILDENAFIL CITRATE
  4. AMBRISENTAN [Suspect]
     Active Substance: AMBRISENTAN
     Indication: PULMONARY ARTERIAL HYPERTENSION
     Dosage: 10 MG, QD
     Route: 065
     Dates: start: 20120501

REACTIONS (10)
  - Device related infection [Recovered/Resolved]
  - Catheter site pain [Unknown]
  - Device malfunction [Recovered/Resolved]
  - Diarrhoea [Recovered/Resolved]
  - Flushing [Recovered/Resolved]
  - Staphylococcal bacteraemia [Unknown]
  - Hyperhidrosis [Recovered/Resolved]
  - Device occlusion [Recovered/Resolved]
  - Vomiting [Recovered/Resolved]
  - Catheter site swelling [Recovered/Resolved]
